FAERS Safety Report 9248208 (Version 2)
Quarter: 2013Q3

REPORT INFORMATION
  Report Type: Spontaneous
  Country: FR (occurrence: FR)
  Receive Date: 20130423
  Receipt Date: 20130806
  Transmission Date: 20140515
  Serious: Yes (Hospitalization)
  Sender: FDA-Public Use
  Company Number: PHHY2013FR037552

PATIENT
  Age: 80 Year
  Sex: Female

DRUGS (7)
  1. VOLTAREN [Suspect]
     Indication: OSTEOARTHRITIS
     Dosage: 75 MG, TID
     Route: 048
     Dates: end: 20130324
  2. METFORMIN [Suspect]
     Indication: DIABETES MELLITUS
     Dosage: UNK UKN, UNK
     Route: 048
     Dates: end: 20130324
  3. KALEORID [Suspect]
     Dosage: 1000 MG, UNK
     Route: 048
     Dates: end: 20130324
  4. COAPROVEL [Suspect]
     Indication: HYPERTENSION
     Dosage: UNK UKN, UNK
     Route: 048
     Dates: end: 20130324
  5. ALPRESS [Suspect]
     Dosage: UNK UKN, UNK
     Dates: start: 20130324, end: 20130324
  6. ATORVASTATIN [Concomitant]
     Dosage: UNK UKN, UNK
     Dates: end: 20130324
  7. GLICLAZIDE [Concomitant]
     Dosage: UNK UKN, UNK
     Dates: end: 20130324

REACTIONS (6)
  - Lactic acidosis [Recovered/Resolved]
  - Hyperkalaemia [Recovered/Resolved]
  - Renal failure acute [Recovered/Resolved]
  - Decreased appetite [Unknown]
  - General physical health deterioration [Unknown]
  - Anuria [Unknown]
